FAERS Safety Report 19120130 (Version 1)
Quarter: 2021Q2

REPORT INFORMATION
  Report Type: Spontaneous
  Country: US (occurrence: US)
  Receive Date: 20210412
  Receipt Date: 20210412
  Transmission Date: 20210717
  Serious: Yes (Disabling, Other)
  Sender: FDA-Public Use
  Company Number: US-SA-2021SA116953

PATIENT
  Age: 13 Year
  Sex: Male

DRUGS (1)
  1. ALDURAZYME [Suspect]
     Active Substance: LARONIDASE
     Dosage: 23.2 MG, QW
     Route: 042

REACTIONS (12)
  - Macroglossia [Unknown]
  - Joint stiffness [Unknown]
  - Hearing aid user [Unknown]
  - Hepatomegaly [Unknown]
  - Carpal tunnel decompression [Unknown]
  - Arthralgia [Unknown]
  - Corneal opacity [Unknown]
  - Snoring [Unknown]
  - Splenomegaly [Unknown]
  - Decreased appetite [Unknown]
  - Tenoplasty [Unknown]
  - Feeling cold [Unknown]

NARRATIVE: CASE EVENT DATE: 2019
